FAERS Safety Report 7138043-X (Version None)
Quarter: 2010Q4

REPORT INFORMATION
  Report Type: 
  Country: None (occurrence: None)
  Receive Date: 20101118
  Receipt Date: 20101102
  Transmission Date: 20110411
  Serious: Yes (Death)
  Sender: FDA-Public Use
  Company Number: 011723

PATIENT
  Age: 60 Year
  Sex: Male

DRUGS (3)
  1. BUSULFEX [Suspect]
     Indication: BONE MARROW CONDITIONING REGIMEN
     Dosage: 3.2 MG/KG, DAILY DOSE, INTRAVENOUS
     Route: 042
  2. FLUDARABINE PHOSPHATE [Concomitant]
  3. CAMPATH USA (ALEMTUZUMAB) [Concomitant]

REACTIONS (1)
  - DEATH [None]
